FAERS Safety Report 8203949-7 (Version None)
Quarter: 2012Q1

REPORT INFORMATION
  Report Type: 
  Country: None (occurrence: None)
  Receive Date: 20120313
  Receipt Date: 20120301
  Transmission Date: 20120608
  Serious: Yes (Hospitalization)
  Sender: FDA-Public Use
  Company Number: US-JNJFOC-20120301334

PATIENT
  Sex: Male
  Weight: 70.31 kg

DRUGS (3)
  1. REMICADE [Suspect]
     Indication: COLITIS
     Dosage: DOSE: 7.5 UNITS UNSPECIFIED
     Route: 042
     Dates: start: 20120206, end: 20120216
  2. REMICADE [Suspect]
     Dosage: DOSE: 0.5 UNITS UNSPECIFIED
     Route: 042
     Dates: start: 20120123, end: 20120206
  3. REMICADE [Suspect]
     Dosage: DOSE: 10 UNITS UNSPECIFIED
     Route: 042
     Dates: start: 20120216, end: 20120216

REACTIONS (2)
  - COLITIS [None]
  - DRUG INEFFECTIVE [None]
